FAERS Safety Report 5199730-6 (Version None)
Quarter: 2007Q1

REPORT INFORMATION
  Report Type: 
  Country: None (occurrence: None)
  Receive Date: 20070103
  Receipt Date: 20070103
  Transmission Date: 20070707
  Serious: No
  Sender: FDA-Public Use
  Company Number: None

PATIENT
  Age: 34 Year
  Sex: Female
  Weight: 90.7194 kg

DRUGS (1)
  1. CELEXA [Suspect]
     Indication: DEPRESSION
     Dosage: 20MG   ONE A DAY   PO
     Route: 048

REACTIONS (12)
  - AGITATION [None]
  - CENTRAL NERVOUS SYSTEM STIMULATION [None]
  - DISTURBANCE IN ATTENTION [None]
  - FATIGUE [None]
  - FEELING JITTERY [None]
  - GENITAL DISORDER FEMALE [None]
  - HYPOAESTHESIA [None]
  - IMPAIRED WORK ABILITY [None]
  - MARITAL PROBLEM [None]
  - SEXUAL DYSFUNCTION [None]
  - TEARFULNESS [None]
  - TREMOR [None]
